FAERS Safety Report 10301808 (Version 1)
Quarter: 2014Q3

REPORT INFORMATION
  Report Type: Spontaneous
  Country: US (occurrence: None)
  Receive Date: 20140710
  Receipt Date: 20140710
  Transmission Date: 20150326
  Serious: Yes (Hospitalization)
  Sender: FDA-Public Use
  Company Number: None

PATIENT
  Age: 2 Year
  Sex: Female
  Weight: 14.6 kg

DRUGS (1)
  1. ORAJEL [Suspect]
     Active Substance: ALLANTOIN\BENZOCAINE\CAMPHOR (NATURAL)\DIMETHICONE\MENTHOL
     Indication: MOUTH ULCERATION
     Dates: start: 20140708, end: 20140708

REACTIONS (1)
  - Methaemoglobinaemia [None]

NARRATIVE: CASE EVENT DATE: 20140708
